FAERS Safety Report 18128848 (Version 1)
Quarter: 2020Q3

REPORT INFORMATION
  Report Type: Spontaneous
  Country: ES (occurrence: ES)
  Receive Date: 20200810
  Receipt Date: 20200810
  Transmission Date: 20201103
  Serious: Yes (Death, Other)
  Sender: FDA-Public Use
  Company Number: NVSC2020ES206561

PATIENT
  Age: 53 Year
  Sex: Female

DRUGS (10)
  1. MYOCET [Suspect]
     Active Substance: DOXORUBICIN
     Indication: SQUAMOUS CELL CARCINOMA OF THE CERVIX
     Dosage: 4 CYCLES
     Route: 065
     Dates: start: 201401, end: 201404
  2. TOPOTECAN [Suspect]
     Active Substance: TOPOTECAN HYDROCHLORIDE
     Indication: SQUAMOUS CELL CARCINOMA OF THE CERVIX
  3. MYOCET [Suspect]
     Active Substance: DOXORUBICIN
     Indication: LUNG NEOPLASM MALIGNANT
  4. PACLITAXEL. [Suspect]
     Active Substance: PACLITAXEL
     Dosage: 8 CYCLES, 2100 MG TOTAL ACCUMULATED DOSE
     Route: 065
     Dates: start: 201210, end: 201308
  5. CARBOPLATIN. [Suspect]
     Active Substance: CARBOPLATIN
     Indication: LUNG NEOPLASM MALIGNANT
     Dosage: AUC OF 5; 4 CYCLES; 4080 MG
     Route: 065
     Dates: start: 201401, end: 201404
  6. CISPLATIN. [Suspect]
     Active Substance: CISPLATIN
     Indication: SQUAMOUS CELL CARCINOMA OF THE CERVIX
  7. TOPOTECAN [Suspect]
     Active Substance: TOPOTECAN HYDROCHLORIDE
     Indication: SQUAMOUS CELL CARCINOMA OF THE CERVIX
     Dosage: FIRST?LINE TREATMENT FOR SIX CYCLES; CUMULATIVE DOSE WAS 21MG
     Route: 065
     Dates: start: 201102, end: 201105
  8. CARBOPLATIN. [Suspect]
     Active Substance: CARBOPLATIN
     Indication: SQUAMOUS CELL CARCINOMA OF THE CERVIX
     Dosage: 8 CYCLES (AUC 6)
     Route: 065
     Dates: start: 201210, end: 201308
  9. CISPLATIN. [Suspect]
     Active Substance: CISPLATIN
     Indication: SQUAMOUS CELL CARCINOMA OF THE CERVIX
     Dosage: FIRST?LINE TREATMENT FOR 6 CYCLES; CUMULATIVE DOSE 477MG
     Route: 065
     Dates: start: 201102, end: 201105
  10. PACLITAXEL. [Suspect]
     Active Substance: PACLITAXEL
     Indication: SQUAMOUS CELL CARCINOMA OF THE CERVIX
     Dosage: 75 MG/M2, QW
     Route: 065
     Dates: start: 201110, end: 201207

REACTIONS (10)
  - Death [Fatal]
  - Petechiae [Unknown]
  - Bicytopenia [Unknown]
  - Therapy partial responder [Unknown]
  - Thrombocytopenia [Unknown]
  - Epistaxis [Unknown]
  - Anaemia [Unknown]
  - Second primary malignancy [Unknown]
  - Acute myeloid leukaemia [Unknown]
  - General physical health deterioration [Unknown]

NARRATIVE: CASE EVENT DATE: 201403
